FAERS Safety Report 8114722-2 (Version None)
Quarter: 2012Q1

REPORT INFORMATION
  Report Type: 
  Country: None (occurrence: None)
  Receive Date: 20120202
  Receipt Date: 20120202
  Transmission Date: 20120608
  Serious: Yes (Hospitalization)
  Sender: FDA-Public Use
  Company Number: None

PATIENT
  Sex: Female
  Weight: 46.8 kg

DRUGS (1)
  1. PACLITAXEL [Suspect]
     Indication: BREAST CANCER
     Dosage: 240 MG Q 2 WEEKS IV
     Route: 042
     Dates: start: 20111219, end: 20120117

REACTIONS (3)
  - TROPONIN INCREASED [None]
  - HYPOAESTHESIA [None]
  - NECK PAIN [None]
